FAERS Safety Report 10586739 (Version 1)
Quarter: 2014Q4

REPORT INFORMATION
  Report Type: Spontaneous
  Country: US (occurrence: US)
  Receive Date: 20141117
  Receipt Date: 20141117
  Transmission Date: 20150529
  Serious: Yes (Hospitalization, Other)
  Sender: FDA-Public Use
  Company Number: US-GLAXOSMITHKLINE-US2014GSK019046

PATIENT
  Age: 59 Year
  Sex: Female

DRUGS (5)
  1. BENLYSTA [Suspect]
     Active Substance: BELIMUMAB
     Indication: SYSTEMIC LUPUS ERYTHEMATOSUS
     Dates: start: 2013, end: 20140401
  2. IMMUNOSUPPRESSIVE [Concomitant]
     Active Substance: UNSPECIFIED INGREDIENT
  3. ANTIHYPERTENSIVES [Concomitant]
     Active Substance: UNSPECIFIED INGREDIENT
  4. PLAQUENIL [Concomitant]
     Active Substance: HYDROXYCHLOROQUINE SULFATE
  5. CARDIAC MEDICATION [Concomitant]
     Active Substance: UNSPECIFIED INGREDIENT

REACTIONS (11)
  - Diarrhoea [Unknown]
  - Dehydration [Unknown]
  - Coeliac disease [Not Recovered/Not Resolved]
  - Sepsis [Unknown]
  - Hypotension [Unknown]
  - Acute kidney injury [Unknown]
  - Depressed level of consciousness [Recovered/Resolved]
  - Malnutrition [Unknown]
  - Dysuria [Unknown]
  - Pancreas infection [Unknown]
  - Arthropathy [Unknown]

NARRATIVE: CASE EVENT DATE: 201310
